FAERS Safety Report 5484110-6 (Version None)
Quarter: 2007Q4

REPORT INFORMATION
  Report Type: 
  Country: None (occurrence: None)
  Receive Date: 20071012
  Receipt Date: 20070928
  Transmission Date: 20080405
  Serious: Yes (Hospitalization)
  Sender: FDA-Public Use
  Company Number: HU-SHR-HU-2005-003010

PATIENT
  Age: 34 Year
  Sex: Female
  Weight: 90 kg

DRUGS (7)
  1. BETAFERON [Suspect]
     Indication: RELAPSING-REMITTING MULTIPLE SCLEROSIS
     Dosage: 8 MIU, EVERY 2D
     Route: 058
     Dates: start: 20050110
  2. BETAFERON [Suspect]
     Dosage: .5 ML, EVERY 2D
     Route: 058
     Dates: start: 20050301
  3. TRI-REGOL [Suspect]
     Indication: ORAL CONTRACEPTION
     Dosage: UNK, UNK
     Dates: end: 20050218
  4. ZOLOFT [Concomitant]
     Indication: DEPRESSION
     Dosage: 20 MG, 1X/DAY
     Route: 048
     Dates: start: 20030301
  5. MIANSERIN [Concomitant]
     Indication: DEPRESSION
     Dosage: 30 MG, 1X/DAY
     Route: 048
     Dates: start: 20040101
  6. XANAX [Concomitant]
     Indication: DEPRESSION
     Dosage: .25 MG, 3X/DAY
     Route: 048
     Dates: start: 20030301
  7. PANADOL [Concomitant]
     Indication: PROPHYLAXIS
     Dosage: 500 MG, EVERY 2D
     Route: 048
     Dates: start: 20050110

REACTIONS (2)
  - HEPATIC STEATOSIS [None]
  - LIVER DISORDER [None]
